FAERS Safety Report 8099893-9 (Version None)
Quarter: 2012Q1

REPORT INFORMATION
  Report Type: 
  Country: None (occurrence: None)
  Receive Date: 20120131
  Receipt Date: 20120125
  Transmission Date: 20120608
  Serious: No
  Sender: FDA-Public Use
  Company Number: US-PFIZER INC-2012021428

PATIENT
  Sex: Male
  Weight: 72.562 kg

DRUGS (1)
  1. CELEBREX [Suspect]
     Indication: INTERVERTEBRAL DISC INJURY
     Dosage: 200 MG, DAILY
     Route: 048
     Dates: start: 20110101, end: 20110101

REACTIONS (1)
  - TINNITUS [None]
